FAERS Safety Report 10646003 (Version 2)
Quarter: 2015Q2

REPORT INFORMATION
  Report Type: Spontaneous
  Country: IT (occurrence: IT)
  Receive Date: 20141211
  Receipt Date: 20150416
  Transmission Date: 20150821
  Serious: Yes (Hospitalization)
  Sender: FDA-Public Use
  Company Number: IT-WATSON-2014-26312

PATIENT
  Age: 68 Year
  Sex: Male

DRUGS (2)
  1. AUGMENTIN [Suspect]
     Active Substance: AMOXICILLIN\CLAVULANATE POTASSIUM
     Indication: PROSTATITIS
     Dosage: 1 DF, UNKNOWN
     Route: 065
     Dates: start: 20141108, end: 20141108
  2. RAPAFLO [Suspect]
     Active Substance: SILODOSIN
     Indication: PROSTATITIS
     Dosage: 8 MG, SINGLE
     Route: 065
     Dates: start: 20141108, end: 20141108

REACTIONS (4)
  - Fall [None]
  - Traumatic intracranial haemorrhage [Unknown]
  - Erythema [Recovering/Resolving]
  - Syncope [Recovering/Resolving]

NARRATIVE: CASE EVENT DATE: 20141108
